FAERS Safety Report 4317017-8 (Version None)
Quarter: 2004Q1

REPORT INFORMATION
  Report Type: 
  Country: None (occurrence: None)
  Receive Date: 20040312
  Receipt Date: 20040218
  Transmission Date: 20041129
  Serious: Yes (Disabling)
  Sender: FDA-Public Use
  Company Number: HQ2029010OCT2000

PATIENT
  Age: 9 Year
  Sex: Male
  Weight: 25 kg

DRUGS (11)
  1. NEUMEGA [Suspect]
     Indication: APLASTIC ANAEMIA
     Dosage: 75UG/KG/DAY INTERMITTENTLY (2000 1.1 UG), SUBCUTANEOUS
     Route: 058
     Dates: start: 20000606, end: 20001002
  2. ATG (ANTILYMPHOCYTE IMMUNOGLOBULIN (HORSE), ) [Suspect]
     Indication: APLASTIC ANAEMIA
     Dosage: 20 MG/KG 1X PER 1 DAY, INTRAVENOUS
     Route: 042
  3. LEUKINE [Suspect]
     Indication: APLASTIC ANAEMIA
     Dosage: SEE IMAGE
     Route: 058
     Dates: start: 20000606, end: 20001003
  4. LEUKINE [Suspect]
     Indication: APLASTIC ANAEMIA
     Dosage: SEE IMAGE
     Route: 058
     Dates: start: 20001013
  5. BENADRYL [Concomitant]
  6. SOLU-CORTEF [Concomitant]
  7. ACETAMINOPHEN [Concomitant]
  8. CYCLOSPORINE [Concomitant]
  9. CYCLOSPORINE [Concomitant]
  10. CYCLOSPORINE [Concomitant]
  11. CYCLOSPORINE [Concomitant]

REACTIONS (7)
  - BREATH SOUNDS ABSENT [None]
  - CARDIAC DISORDER [None]
  - CARDIOTOXICITY [None]
  - DYSPNOEA [None]
  - EJECTION FRACTION DECREASED [None]
  - PERICARDIAL EFFUSION [None]
  - TRICUSPID VALVE INCOMPETENCE [None]
